FAERS Safety Report 17413404 (Version 1)
Quarter: 2020Q1

REPORT INFORMATION
  Report Type: Spontaneous
  Country: PT (occurrence: PT)
  Receive Date: 20200213
  Receipt Date: 20200213
  Transmission Date: 20200409
  Serious: Yes (Life-Threatening)
  Sender: FDA-Public Use
  Company Number: PT-ASTRAZENECA-2019SE44193

PATIENT
  Age: 46 Year
  Sex: Female

DRUGS (2)
  1. METFORMIN/ DAPAGLIFLOZIN [Suspect]
     Active Substance: DAPAGLIFLOZIN PROPANEDIOL\METFORMIN HYDROCHLORIDE
     Indication: HYPERGLYCAEMIA
     Dosage: 1000MG/5MG TWO TIMES A DAY
     Route: 048
  2. INSULIN DETEMIR [Concomitant]
     Active Substance: INSULIN DETEMIR
     Indication: HYPERGLYCAEMIA
     Dosage: 50U AT BREAKFAST AND 36U AT DINNER

REACTIONS (1)
  - Euglycaemic diabetic ketoacidosis [Recovering/Resolving]
